FAERS Safety Report 9650163 (Version 5)
Quarter: 2014Q2

REPORT INFORMATION
  Report Type: Spontaneous
  Country: US (occurrence: US)
  Receive Date: 20131028
  Receipt Date: 20140527
  Transmission Date: 20141212
  Serious: Yes (Other)
  Sender: FDA-Public Use
  Company Number: US-PURDUE-USA-2012-0092844

PATIENT
  Age: 58 Year
  Sex: Female
  Weight: 95.24 kg

DRUGS (20)
  1. OXYCONTIN (NDA 22-272) [Suspect]
     Indication: BACK PAIN
     Dosage: 80 MG, BID
     Route: 048
     Dates: start: 2011
  2. OXYCONTIN (NDA 22-272) [Suspect]
     Dosage: 480 MG, TID [80MG TABLETS]
     Route: 048
     Dates: start: 2012
  3. DILAUDID TABLET [Concomitant]
     Indication: BACK PAIN
     Dosage: 8 MG, PRN
     Route: 048
  4. OXYCODONE HCL IMMEDIATE RELEASE (91-490) [Concomitant]
     Indication: PRODUCT USED FOR UNKNOWN INDICATION
     Dosage: 30 MG, ALTERNATED WITH OXYCONTIN Q 4 HOURS
     Route: 048
  5. NORCO [Suspect]
     Indication: BREAKTHROUGH PAIN
     Dosage: 1 TABLET (10/325MG), PRN
     Route: 048
  6. OPANA [Suspect]
     Indication: BREAKTHROUGH PAIN
     Dosage: 40 MG, UNK
     Route: 048
  7. MIRALAX                            /00754501/ [Suspect]
     Indication: CONSTIPATION
  8. METFORMIN [Concomitant]
     Indication: DIABETES MELLITUS
     Dosage: 1000 MG, BID
     Route: 048
     Dates: start: 1998
  9. PRILOSEC                           /00661201/ [Concomitant]
     Indication: DYSPEPSIA
     Dosage: 20 MG, DAILY
     Route: 048
  10. SKELAXIN                           /00611501/ [Concomitant]
     Indication: MUSCLE SPASMS
     Dosage: 800 MG, TID
     Route: 048
     Dates: start: 201209
  11. DETROL [Concomitant]
     Indication: URINARY INCONTINENCE
     Dosage: 10 MG, DAILY
     Route: 048
  12. TOPAMAX [Concomitant]
     Indication: BIPOLAR DISORDER
     Dosage: 100 MG, DAILY
     Route: 048
  13. TOPAMAX [Concomitant]
     Dosage: 200 MG, UNK
  14. XANAX [Concomitant]
     Indication: ANXIETY
     Dosage: 2 MG, PRN
     Route: 048
  15. ADDERALL [Concomitant]
     Indication: ATTENTION DEFICIT/HYPERACTIVITY DISORDER
     Dosage: 30 MG ER, DAILY
     Route: 048
  16. WELLBUTRIN [Concomitant]
     Indication: BIPOLAR DISORDER
     Dosage: 150 MG, DAILY
     Route: 048
  17. VALIUM                             /00017001/ [Concomitant]
     Indication: PRODUCT USED FOR UNKNOWN INDICATION
     Dosage: 10 MG, UNK
     Route: 048
  18. IBUPROFEN [Concomitant]
     Indication: PRODUCT USED FOR UNKNOWN INDICATION
     Dosage: 800 MG, UNK
     Route: 048
  19. IBUPROFEN [Concomitant]
     Dosage: 400 MG, UNK
  20. PROZAC [Concomitant]
     Indication: PRODUCT USED FOR UNKNOWN INDICATION
     Dosage: 20 MG, UNK

REACTIONS (16)
  - Surgery [Not Recovered/Not Resolved]
  - Balance disorder [Unknown]
  - Gastrooesophageal reflux disease [Unknown]
  - Dysstasia [Unknown]
  - Loss of consciousness [Unknown]
  - Fall [Unknown]
  - Drug effect decreased [Unknown]
  - Nausea [Not Recovered/Not Resolved]
  - Abdominal pain upper [Not Recovered/Not Resolved]
  - Abdominal pain [Not Recovered/Not Resolved]
  - Dyspepsia [Not Recovered/Not Resolved]
  - Constipation [Unknown]
  - Retching [Unknown]
  - Hyperhidrosis [Unknown]
  - Dizziness [Unknown]
  - Muscular weakness [Unknown]
